FAERS Safety Report 6503674-4 (Version None)
Quarter: 2009Q4

REPORT INFORMATION
  Report Type: 
  Country: None (occurrence: None)
  Receive Date: 20091217
  Receipt Date: 20091209
  Transmission Date: 20100525
  Serious: Yes (Other)
  Sender: FDA-Public Use
  Company Number: GB-NOVOPROD-301922

PATIENT
  Age: 25 Year
  Sex: Male
  Weight: 60 kg

DRUGS (2)
  1. NOVOSEVEN [Suspect]
     Indication: HAEMOSTASIS
     Dosage: 90 UG/KG, SINGLE
     Route: 042
  2. NOVOSEVEN [Suspect]
     Dosage: 50 UG/KG/HOUR CONT. INFUS
     Route: 042

REACTIONS (3)
  - ANAEMIA [None]
  - HAEMARTHROSIS [None]
  - THROMBOCYTOPENIA [None]
